FAERS Safety Report 15007266 (Version 3)
Quarter: 2018Q2

REPORT INFORMATION
  Report Type: Report from Study
  Country: CA (occurrence: CA)
  Receive Date: 20180613
  Receipt Date: 20180622
  Transmission Date: 20180711
  Serious: Yes (Other)
  Sender: FDA-Public Use
  Company Number: CA-UCBSA-2018012936

PATIENT
  Sex: Female

DRUGS (5)
  1. CERTOLIZUMAB PEGOL AUTOCLICKS [Suspect]
     Active Substance: CERTOLIZUMAB PEGOL
     Dosage: 400 MG, EV 4 WEEKS
     Route: 058
     Dates: start: 20130507, end: 20180307
  2. CERTOLIZUMAB PEGOL AUTOCLICKS [Suspect]
     Active Substance: CERTOLIZUMAB PEGOL
     Indication: RHEUMATOID ARTHRITIS
     Dosage: 400 MG, EV 2 WEEKS(QOW)
     Route: 058
     Dates: start: 20130312, end: 2013
  3. CERTOLIZUMAB PEGOL AUTOCLICKS [Suspect]
     Active Substance: CERTOLIZUMAB PEGOL
     Dosage: 200 MG, ONE TIME DOSE
     Route: 058
     Dates: start: 201805, end: 201805
  4. CERTOLIZUMAB PEGOL AUTOCLICKS [Suspect]
     Active Substance: CERTOLIZUMAB PEGOL
     Dosage: 400 MG, EV 4 WEEKS
     Route: 058
     Dates: start: 201805, end: 201805
  5. MOXIFLOXACIN. [Concomitant]
     Active Substance: MOXIFLOXACIN
     Indication: PRODUCT USED FOR UNKNOWN INDICATION
     Dosage: 400 MG, ONCE DAILY (QD)

REACTIONS (11)
  - Unevaluable event [Unknown]
  - Fall [Unknown]
  - Joint stiffness [Unknown]
  - Irritability [Unknown]
  - Feeling of body temperature change [Unknown]
  - Body temperature increased [Unknown]
  - Hypotension [Unknown]
  - Wound [Unknown]
  - Pain [Unknown]
  - Dizziness [Unknown]
  - Pharyngeal abscess [Not Recovered/Not Resolved]

NARRATIVE: CASE EVENT DATE: 2018
